FAERS Safety Report 5386181-4 (Version None)
Quarter: 2007Q3

REPORT INFORMATION
  Report Type: 
  Country: None (occurrence: None)
  Receive Date: 20070710
  Receipt Date: 20070710
  Transmission Date: 20080115
  Serious: No
  Sender: FDA-Public Use
  Company Number: None

PATIENT
  Sex: Female

DRUGS (1)
  1. LACTATED RINGER'S [Suspect]
     Indication: ENDOSCOPY
     Dosage: ONCE IV DRIP
     Route: 041
     Dates: start: 20070629, end: 20070629

REACTIONS (2)
  - ERYTHEMA [None]
  - INFUSION SITE ERYTHEMA [None]
